FAERS Safety Report 15598741 (Version 6)
Quarter: 2019Q3

REPORT INFORMATION
  Report Type: Report from Study
  Country: JP (occurrence: JP)
  Receive Date: 20181108
  Receipt Date: 20190719
  Transmission Date: 20191004
  Serious: Yes (Death, Life-Threatening, Hospitalization)
  Sender: FDA-Public Use
  Company Number: JP-PFIZER INC-2018450947

PATIENT
  Age: 89 Year
  Sex: Female
  Weight: 32 kg

DRUGS (13)
  1. ARTIST [Concomitant]
     Active Substance: CARVEDILOL
     Dosage: UNK
  2. SELARA [Suspect]
     Active Substance: EPLERENONE
     Indication: CARDIAC FAILURE CHRONIC
     Dosage: 25 MG, 1X/DAY IN THE MORNING
     Route: 048
     Dates: start: 20180207, end: 20180220
  3. DIART [Concomitant]
     Active Substance: AZOSEMIDE
     Indication: CARDIAC FAILURE CHRONIC
     Dosage: UNK
     Route: 048
     Dates: start: 20180207
  4. CYTOTEC [Concomitant]
     Active Substance: MISOPROSTOL
     Indication: GASTRITIS PROPHYLAXIS
     Dosage: UNK
     Route: 048
     Dates: start: 20140405
  5. RECALBON [MINODRONIC ACID] [Concomitant]
     Active Substance: MINODRONIC ACID
     Indication: OSTEOPOROSIS
     Dosage: UNK
     Route: 048
     Dates: start: 20140707
  6. BLOPRESS [Concomitant]
     Active Substance: CANDESARTAN CILEXETIL
     Indication: HYPERTENSION
     Dosage: UNK
     Route: 048
     Dates: start: 20140409
  7. CELECOX [Concomitant]
     Active Substance: CELECOXIB
     Indication: SPINAL OSTEOARTHRITIS
     Dosage: UNK
     Route: 048
     Dates: start: 20140409
  8. FAMOTIDINE. [Concomitant]
     Active Substance: FAMOTIDINE
     Indication: GASTRIC ULCER
     Dosage: UNK
     Route: 048
     Dates: start: 20140527
  9. MAGMITT [Concomitant]
     Active Substance: MAGNESIUM OXIDE
     Indication: CONSTIPATION
     Dosage: UNK
     Route: 048
     Dates: start: 20140616
  10. MOHRUS [Concomitant]
     Active Substance: KETOPROFEN
     Indication: LUMBAR SPINAL STENOSIS
     Dosage: UNK
     Route: 003
     Dates: start: 20140409
  11. HIBON [Concomitant]
     Active Substance: RIBOFLAVIN
     Indication: HYPERLIPIDAEMIA
     Dosage: UNK
     Route: 048
     Dates: start: 20140531
  12. ATORVASTATIN [Concomitant]
     Active Substance: ATORVASTATIN
     Indication: HYPERLIPIDAEMIA
     Dosage: UNK
     Route: 048
     Dates: start: 20140409
  13. AMLODIPINE [Concomitant]
     Active Substance: AMLODIPINE BESYLATE
     Indication: HYPERTENSION
     Dosage: UNK
     Route: 048
     Dates: start: 20140409

REACTIONS (2)
  - Hyperkalaemia [Recovered/Resolved]
  - Cardiac failure chronic [Fatal]

NARRATIVE: CASE EVENT DATE: 20180220
